FAERS Safety Report 4443367-0 (Version None)
Quarter: 2004Q3

REPORT INFORMATION
  Report Type: 
  Country: None (occurrence: None)
  Receive Date: 20040908
  Receipt Date: 20040902
  Transmission Date: 20050211
  Serious: Yes (Hospitalization)
  Sender: FDA-Public Use
  Company Number: PHBS2004CN11518

PATIENT

DRUGS (1)
  1. MIACALCIN [Suspect]
     Indication: OSTEOPOROSIS
     Dosage: 50 IU, QD
     Route: 030
     Dates: start: 20040801

REACTIONS (2)
  - CHILLS [None]
  - TACHYCARDIA [None]
